FAERS Safety Report 21247171 (Version 1)
Quarter: 2022Q3

REPORT INFORMATION
  Report Type: Spontaneous
  Country: US (occurrence: None)
  Receive Date: 20220823
  Receipt Date: 20220823
  Transmission Date: 20221027
  Serious: Yes (Death, Life-Threatening, Hospitalization, Other)
  Sender: FDA-Public Use
  Company Number: None

PATIENT
  Age: 74 Year
  Sex: Male
  Weight: 78.75 kg

DRUGS (18)
  1. OPDIVO [Suspect]
     Active Substance: NIVOLUMAB
     Indication: Metastatic malignant melanoma
     Dosage: OTHER FREQUENCY : MD INFUSION;?
     Route: 042
  2. Atorvastatin 40mg	PO Q-AM [Concomitant]
  3. Glimepiride 4mg PO Q-AM [Concomitant]
  4. Lisinopril 10mg PO Q-AM [Concomitant]
  5. Metformin  1000mg PO BID, [Concomitant]
  6. Metoprolol 50mg PO Q-AM [Concomitant]
  7. Toujeo  20u SQ BID [Concomitant]
  8. Mirtazapine 15mg PO Q-PM [Concomitant]
  9. Gabapentin  100mg PO Q-PM [Concomitant]
  10. Keppra 500mg PO BID [Concomitant]
  11. Dexamethasone 4mg PO BID [Concomitant]
  12. Prilosec 40mg PO Q-AM [Concomitant]
  13. Multivitamin 1ea PO Q-AM [Concomitant]
  14. Vitamin D 5000iu PO Q-AM [Concomitant]
  15. Vitamin C 1000mg PO Q-PM [Concomitant]
  16. Aspirin 81mg PO Q-PM [Concomitant]
  17. Magnesium 250mg PO Q-PM [Concomitant]
  18. YERVOY [Suspect]
     Active Substance: IPILIMUMAB

REACTIONS (9)
  - Miller Fisher syndrome [None]
  - Rash [None]
  - Seizure [None]
  - Food refusal [None]
  - Dysphagia [None]
  - Gait inability [None]
  - Aphasia [None]
  - Plasmapheresis [None]
  - Weight decreased [None]

NARRATIVE: CASE EVENT DATE: 20220613
